FAERS Safety Report 5270314-4 (Version None)
Quarter: 2007Q1

REPORT INFORMATION
  Report Type: 
  Country: None (occurrence: None)
  Receive Date: 20070320
  Receipt Date: 20070308
  Transmission Date: 20070707
  Serious: Yes (Death, Other)
  Sender: FDA-Public Use
  Company Number: US-PFIZER INC-2006102069

PATIENT
  Sex: Male

DRUGS (8)
  1. NEURONTIN [Suspect]
     Indication: FACET JOINT SYNDROME
     Route: 048
     Dates: start: 20030401, end: 20030729
  2. METHADONE HCL [Concomitant]
  3. LORTAB [Concomitant]
     Dates: end: 20030729
  4. VALIUM [Concomitant]
     Dates: end: 20030729
  5. AMBIEN [Concomitant]
     Dates: end: 20030729
  6. ZOLOFT [Concomitant]
     Dates: end: 20030729
  7. FLEXERIL [Concomitant]
     Dates: end: 20030729
  8. OXYCONTIN [Concomitant]

REACTIONS (2)
  - COMPLETED SUICIDE [None]
  - INJURY ASPHYXIATION [None]
